FAERS Safety Report 24042085 (Version 3)
Quarter: 2024Q4

REPORT INFORMATION
  Report Type: Report from Study
  Country: NL (occurrence: NL)
  Receive Date: 20240702
  Receipt Date: 20241120
  Transmission Date: 20250115
  Serious: Yes (Other)
  Sender: ABBVIE
  Company Number: NL-ABBVIE-5819382

PATIENT
  Sex: Male

DRUGS (17)
  1. CARBIDOPA\LEVODOPA [Suspect]
     Active Substance: CARBIDOPA\LEVODOPA
     Indication: Parkinson^s disease
     Dosage: LD:1.30ML, BIR:0.47ML/H, LIR:0.27ML/H, ED:0.30ML?DURATION TEXT: REMAINS AT 24 HOURS
     Route: 058
     Dates: start: 20240424, end: 20240425
  2. CARBIDOPA\LEVODOPA [Suspect]
     Active Substance: CARBIDOPA\LEVODOPA
     Dosage: LD:1.30ML, BIR:0.34ML/H, LIR:0.21ML/H, ED:0.30ML?DURATION TEXT: REMAINS AT 24 HOURS
     Route: 058
     Dates: start: 20240422, end: 20240423
  3. CARBIDOPA\LEVODOPA [Suspect]
     Active Substance: CARBIDOPA\LEVODOPA
     Dosage: LD: 1.30ML, BIR: 0.61ML/H, HIR: 0.61ML/H, LIR:0.36ML/H; ED: 0.30ML?DURATION TEXT: REMAINS AT 24 H...
     Route: 058
     Dates: start: 20240828, end: 20241112
  4. CARBIDOPA\LEVODOPA [Suspect]
     Active Substance: CARBIDOPA\LEVODOPA
     Dosage: LD:1.30ML, BIR:0.58ML/H, LIR:0.33ML/H, ED:0.30ML?DURATION TEXT: REMAINS AT 24 HOURS
     Route: 058
     Dates: start: 20240603, end: 20240625
  5. CARBIDOPA\LEVODOPA [Suspect]
     Active Substance: CARBIDOPA\LEVODOPA
     Dosage: LD: 1.30ML, BIR: 0.61ML/H, LIR:0.36ML/H; ED: 0.30ML?DURATION TEXT: REMAINS AT 24 HOURS
     Route: 058
     Dates: start: 20241112
  6. CARBIDOPA\LEVODOPA [Suspect]
     Active Substance: CARBIDOPA\LEVODOPA
     Dosage: LD:1.30ML, BIR:5.80ML/H, LIR:0.33ML/H, ED:0.30ML?DURATION TEXT: REMAINS AT 24 HOURS
     Route: 058
     Dates: start: 20240516, end: 20240603
  7. CARBIDOPA\LEVODOPA [Suspect]
     Active Substance: CARBIDOPA\LEVODOPA
     Dosage: LD:1.30ML, BIR:0.44ML/H, LIR:0.24ML/H, ED:0.30ML?DURATION TEXT: REMAINS AT 24 HOURS
     Route: 058
     Dates: start: 20240423, end: 20240424
  8. CARBIDOPA\LEVODOPA [Suspect]
     Active Substance: CARBIDOPA\LEVODOPA
     Dosage: LD: 1.30ML, BIR: 0.61ML/H, HIR: 0.61ML/H, ED: 0.30ML?DURATION TEXT: REMAINS AT 24 HOURS
     Route: 058
     Dates: start: 20240625, end: 20240828
  9. CARBIDOPA\LEVODOPA [Suspect]
     Active Substance: CARBIDOPA\LEVODOPA
     Dosage: LD:1.30ML, BIR:0.53ML/H, LIR:0.33ML/H, ED:0.30ML?DURATION TEXT: REMAINS AT 24 HOURS
     Route: 058
     Dates: start: 20240425, end: 20240516
  10. AMITRIPTYLINE [Concomitant]
     Active Substance: AMITRIPTYLINE
     Indication: Sleep disorder
     Route: 048
     Dates: start: 20180305
  11. SINEMET [Concomitant]
     Active Substance: CARBIDOPA\LEVODOPA
     Indication: Parkinson^s disease
     Route: 048
     Dates: start: 20130902
  12. AKINETON [Concomitant]
     Active Substance: BIPERIDEN HYDROCHLORIDE
     Indication: Parkinson^s disease
     Route: 048
  13. AKINETON [Concomitant]
     Active Substance: BIPERIDEN HYDROCHLORIDE
     Indication: Parkinson^s disease
     Dosage: 1 DAY 1/2
     Route: 048
  14. POLYETHYLENE GLYCOLS [Concomitant]
     Active Substance: POLYETHYLENE GLYCOLS
     Indication: Gastrointestinal motility disorder
  15. ROPINIROLE [Concomitant]
     Active Substance: ROPINIROLE
     Indication: Parkinson^s disease
     Route: 048
     Dates: start: 20190304
  16. BOTOX [Suspect]
     Active Substance: ONABOTULINUMTOXINA
     Indication: Muscle spasms
     Dosage: TIME INTERVAL: AS NECESSARY
     Route: 065
  17. BENSERAZIDE HYDROCHLORIDE\LEVODOPA [Concomitant]
     Active Substance: BENSERAZIDE HYDROCHLORIDE\LEVODOPA
     Indication: Product used for unknown indication

REACTIONS (13)
  - Wound [Recovered/Resolved]
  - Unevaluable event [Not Recovered/Not Resolved]
  - Infusion site irritation [Not Recovered/Not Resolved]
  - On and off phenomenon [Not Recovered/Not Resolved]
  - Infusion site erythema [Not Recovered/Not Resolved]
  - Extra dose administered [Not Recovered/Not Resolved]
  - Infusion site infection [Not Recovered/Not Resolved]
  - Therapeutic product effect variable [Not Recovered/Not Resolved]
  - Off label use [Not Recovered/Not Resolved]
  - Parkinson^s disease [Not Recovered/Not Resolved]
  - Cognitive disorder [Not Recovered/Not Resolved]
  - Walking aid user [Not Recovered/Not Resolved]
  - General physical health deterioration [Recovering/Resolving]

NARRATIVE: CASE EVENT DATE: 20240101
